FAERS Safety Report 6604224-4 (Version None)
Quarter: 2010Q1

REPORT INFORMATION
  Report Type: 
  Country: None (occurrence: None)
  Receive Date: 20100226
  Receipt Date: 20090709
  Transmission Date: 20100710
  Serious: No
  Sender: FDA-Public Use
  Company Number: A0796163A

PATIENT
  Age: 19 Year
  Sex: Male

DRUGS (2)
  1. LAMICTAL CD [Suspect]
     Indication: BIPOLAR DISORDER
     Dosage: 200MG PER DAY
     Route: 048
     Dates: start: 20081201
  2. GEODON [Concomitant]

REACTIONS (1)
  - BLOOD CREATININE INCREASED [None]
